FAERS Safety Report 4968209-6 (Version None)
Quarter: 2006Q1

REPORT INFORMATION
  Report Type: 
  Country: None (occurrence: None)
  Receive Date: 20060201
  Receipt Date: 20051220
  Transmission Date: 20060701
  Serious: No
  Sender: FDA-Public Use
  Company Number: 2005PV006105

PATIENT
  Age: 57 Year
  Sex: Female
  Weight: 96.1626 kg

DRUGS (7)
  1. BYETTA [Suspect]
     Indication: DIABETES MELLITUS NON-INSULIN-DEPENDENT
     Dosage: SEE IMAGE
     Route: 058
     Dates: start: 20051111, end: 20051210
  2. BYETTA [Suspect]
     Indication: DIABETES MELLITUS NON-INSULIN-DEPENDENT
     Dosage: SEE IMAGE
     Route: 058
     Dates: start: 20051211
  3. METFORMIN [Concomitant]
  4. PEPCID [Concomitant]
  5. LISINOPRIL [Concomitant]
  6. VYTORIN [Concomitant]
  7. ASPIRIN [Concomitant]

REACTIONS (4)
  - DECREASED APPETITE [None]
  - DIZZINESS [None]
  - EARLY SATIETY [None]
  - GASTROOESOPHAGEAL REFLUX DISEASE [None]
